FAERS Safety Report 9752394 (Version 2)
Quarter: 2013Q4

REPORT INFORMATION
  Report Type: Spontaneous
  Country: GB (occurrence: None)
  Receive Date: 20131211
  Receipt Date: 20131220
  Transmission Date: 20140711
  Serious: Yes (Other)
  Sender: FDA-Public Use
  Company Number: AUR-APL-2013-10129

PATIENT
  Sex: Female

DRUGS (1)
  1. BISOPROLOL [Suspect]
     Indication: BLOOD PRESSURE
     Dates: end: 201307

REACTIONS (8)
  - Malaise [None]
  - Fatigue [None]
  - Rash generalised [None]
  - Urticaria [None]
  - Weight increased [None]
  - Hyperhidrosis [None]
  - Nephrolithiasis [None]
  - Contusion [None]
